FAERS Safety Report 9237713 (Version 2)
Quarter: 2013Q2

REPORT INFORMATION
  Report Type: Spontaneous
  Country: US (occurrence: US)
  Receive Date: 20130418
  Receipt Date: 20130509
  Transmission Date: 20140414
  Serious: No
  Sender: FDA-Public Use
  Company Number: US-BIOGENIDEC-2013BI033521

PATIENT
  Age: 48 Year
  Sex: Female

DRUGS (3)
  1. AVONEX [Suspect]
     Indication: MULTIPLE SCLEROSIS
     Route: 030
  2. AVONEX [Suspect]
     Indication: MULTIPLE SCLEROSIS
     Route: 030
     Dates: start: 20130101
  3. AVONEX [Suspect]
     Indication: MULTIPLE SCLEROSIS
     Route: 030
     Dates: start: 20130314

REACTIONS (7)
  - Balance disorder [Unknown]
  - Restless legs syndrome [Recovered/Resolved]
  - Influenza like illness [Recovered/Resolved]
  - Fatigue [Unknown]
  - Injection site pain [Unknown]
  - Pain in extremity [Unknown]
  - Headache [Unknown]
